FAERS Safety Report 5763219-3 (Version None)
Quarter: 2008Q2

REPORT INFORMATION
  Report Type: 
  Country: None (occurrence: None)
  Receive Date: 20080609
  Receipt Date: 20080528
  Transmission Date: 20081010
  Serious: Yes (Other)
  Sender: FDA-Public Use
  Company Number: US-PFIZER INC-2008046341

PATIENT
  Sex: Male
  Weight: 79.4 kg

DRUGS (5)
  1. FLAGYL [Suspect]
     Indication: CLOSTRIDIAL INFECTION
  2. VANCOMYCIN [Concomitant]
  3. LOVENOX [Concomitant]
  4. WARFARIN SODIUM [Concomitant]
  5. ATACAND [Concomitant]

REACTIONS (7)
  - ANAEMIA [None]
  - IVTH NERVE PARALYSIS [None]
  - MESENTERIC VEIN THROMBOSIS [None]
  - PORTAL VEIN THROMBOSIS [None]
  - PULMONARY EMBOLISM [None]
  - THROMBOPHLEBITIS [None]
  - THROMBOSIS [None]
